FAERS Safety Report 5805094-4 (Version None)
Quarter: 2008Q3

REPORT INFORMATION
  Report Type: 
  Country: None (occurrence: None)
  Receive Date: 20080709
  Receipt Date: 20080701
  Transmission Date: 20090109
  Serious: Yes (Hospitalization)
  Sender: FDA-Public Use
  Company Number: FR-ABBOTT-08P-056-0460356-00

PATIENT
  Age: 40 Year
  Sex: Male

DRUGS (5)
  1. LOPINAVIR AND RITONAVIR [Suspect]
     Indication: ANTIRETROVIRAL THERAPY
     Dosage: NOT REPORTED
  2. DOCETAXEL [Interacting]
     Indication: CHEMOTHERAPY
     Dosage: 25 MG/M**2
  3. LAMIVUDINE [Concomitant]
     Indication: ANTIRETROVIRAL THERAPY
     Dosage: NOT REPORTED
  4. TENOFOVIR DISOPROXIL FUMARATE [Concomitant]
     Indication: ANTIRETROVIRAL THERAPY
     Dosage: NOT REPORTED
  5. BACTRIM [Concomitant]
     Indication: PNEUMONIA
     Dosage: NOT REPORTED

REACTIONS (2)
  - DRUG INTERACTION [None]
  - FEBRILE NEUTROPENIA [None]
